FAERS Safety Report 10005937 (Version 4)
Quarter: 2016Q3

REPORT INFORMATION
  Report Type: Report from Study
  Country: FI (occurrence: FI)
  Receive Date: 20140313
  Receipt Date: 20160727
  Transmission Date: 20161108
  Serious: Yes (Death, Hospitalization, Other)
  Sender: FDA-Public Use
  Company Number: FI-CELGENEUS-055-21880-14024387

PATIENT

DRUGS (5)
  1. REVLIMID [Suspect]
     Active Substance: LENALIDOMIDE
     Route: 048
  2. BORTEZOMIB [Concomitant]
     Active Substance: BORTEZOMIB
     Indication: PLASMA CELL MYELOMA
     Route: 058
  3. REVLIMID [Suspect]
     Active Substance: LENALIDOMIDE
     Indication: PLASMA CELL MYELOMA
     Route: 048
  4. MELPHALAN [Concomitant]
     Active Substance: MELPHALAN
     Indication: PLASMA CELL MYELOMA
     Route: 065
  5. DEXAMETHASONE. [Concomitant]
     Active Substance: DEXAMETHASONE
     Indication: PLASMA CELL MYELOMA
     Route: 065

REACTIONS (18)
  - Sepsis [Unknown]
  - Hepatorenal syndrome [Fatal]
  - Atrial fibrillation [Unknown]
  - Pneumonia [Recovered/Resolved]
  - Constipation [Recovered/Resolved]
  - Gastrointestinal disorder [Unknown]
  - Plasma cell myeloma [Unknown]
  - Amaurosis fugax [Unknown]
  - Hepatotoxicity [Unknown]
  - Deep vein thrombosis [Unknown]
  - Lung adenocarcinoma [Unknown]
  - Syncope [Unknown]
  - Febrile neutropenia [Unknown]
  - Neutropenia [Unknown]
  - Infection [Unknown]
  - Death [Fatal]
  - Diarrhoea [Recovered/Resolved]
  - Toxicity to various agents [Unknown]
